FAERS Safety Report 5771517-2 (Version None)
Quarter: 2008Q2

REPORT INFORMATION
  Report Type: 
  Country: None (occurrence: None)
  Receive Date: 20080611
  Receipt Date: 20080529
  Transmission Date: 20081010
  Serious: Yes (Other)
  Sender: FDA-Public Use
  Company Number: 220001M08GRC

PATIENT
  Sex: Female

DRUGS (1)
  1. SAIZEN [Suspect]
     Indication: GROWTH HORMONE DEFICIENCY
     Dosage: SUBCUTANEOUS
     Route: 058
     Dates: start: 20070801

REACTIONS (7)
  - CHILLS [None]
  - GROWTH HORMONE DEFICIENCY [None]
  - INFECTIOUS MONONUCLEOSIS [None]
  - PYREXIA [None]
  - RASH MACULO-PAPULAR [None]
  - TONSILLITIS [None]
  - URTICARIA [None]
